FAERS Safety Report 12333120 (Version 1)
Quarter: 2016Q2

REPORT INFORMATION
  Report Type: Spontaneous
  Country: US (occurrence: US)
  Receive Date: 20160504
  Receipt Date: 20160504
  Transmission Date: 20160815
  Serious: No
  Sender: FDA-Public Use
  Company Number: US-ROCHE-1668588

PATIENT
  Sex: Male
  Weight: 85.81 kg

DRUGS (3)
  1. CIALIS [Concomitant]
     Active Substance: TADALAFIL
  2. VIAGRA [Concomitant]
     Active Substance: SILDENAFIL CITRATE
  3. ESBRIET [Suspect]
     Active Substance: PIRFENIDONE
     Indication: IDIOPATHIC PULMONARY FIBROSIS
     Dosage: 3 CAPSULES THREE TIMES A DAY
     Route: 048
     Dates: start: 20150608

REACTIONS (3)
  - Back pain [Unknown]
  - Productive cough [Unknown]
  - Rhinorrhoea [Unknown]
